FAERS Safety Report 23191199 (Version 1)
Quarter: 2023Q4

REPORT INFORMATION
  Report Type: Spontaneous
  Country: CN (occurrence: CN)
  Receive Date: 20231116
  Receipt Date: 20231116
  Transmission Date: 20240110
  Serious: Yes (Other)
  Sender: FDA-Public Use
  Company Number: None

PATIENT
  Age: 74 Year
  Sex: Female
  Weight: 50 kg

DRUGS (3)
  1. MANNITOL [Suspect]
     Active Substance: MANNITOL
     Indication: Dehydration
     Dosage: 125 ML, 3 TIMES DAILY, DOSAGE FORM - INJECTION
     Route: 041
     Dates: start: 20231101, end: 20231104
  2. MANNITOL [Suspect]
     Active Substance: MANNITOL
     Indication: Reduction of increased intracranial pressure
  3. CEFTRIAXONE SODIUM [Suspect]
     Active Substance: CEFTRIAXONE SODIUM
     Indication: Anti-infective therapy
     Dosage: 2 G ONCE A DAY
     Route: 041
     Dates: start: 20231031, end: 20231103

REACTIONS (4)
  - Anuria [Recovering/Resolving]
  - Urine output decreased [Recovering/Resolving]
  - Blood creatinine increased [Recovering/Resolving]
  - Oliguria [Recovering/Resolving]

NARRATIVE: CASE EVENT DATE: 20231103
